FAERS Safety Report 19226741 (Version 2)
Quarter: 2022Q2

REPORT INFORMATION
  Report Type: Spontaneous
  Country: US (occurrence: None)
  Receive Date: 20210506
  Receipt Date: 20220426
  Transmission Date: 20220721
  Serious: No
  Sender: FDA-Public Use
  Company Number: US-ROCHE-2660893

PATIENT
  Age: 76 Year
  Sex: Female

DRUGS (7)
  1. ESBRIET [Suspect]
     Active Substance: PIRFENIDONE
     Indication: Idiopathic pulmonary fibrosis
     Route: 048
     Dates: start: 202007
  2. ESBRIET [Suspect]
     Active Substance: PIRFENIDONE
     Route: 048
     Dates: start: 20200210
  3. ESBRIET [Suspect]
     Active Substance: PIRFENIDONE
     Route: 048
     Dates: start: 202006
  4. ESBRIET [Suspect]
     Active Substance: PIRFENIDONE
     Dosage: 267 MG TID ORAL, ONGOING: NO
     Route: 048
     Dates: start: 20200217
  5. ALLEGRA [Concomitant]
     Active Substance: FEXOFENADINE HYDROCHLORIDE
  6. ALPRAZOLAM [Concomitant]
     Active Substance: ALPRAZOLAM
  7. ATENOLOL [Concomitant]
     Active Substance: ATENOLOL

REACTIONS (7)
  - Dizziness [Unknown]
  - Arthralgia [Unknown]
  - Muscular weakness [Unknown]
  - Headache [Unknown]
  - Feeling abnormal [Unknown]
  - Anxiety [Unknown]
  - Depression [Unknown]

NARRATIVE: CASE EVENT DATE: 20200710
